FAERS Safety Report 19237030 (Version 23)
Quarter: 2021Q4

REPORT INFORMATION
  Report Type: Report from Study
  Country: CN (occurrence: None)
  Receive Date: 20210510
  Receipt Date: 20211231
  Transmission Date: 20220303
  Serious: Yes (Hospitalization)
  Sender: FDA-Public Use
  Company Number: CN-ROCHE-2823377

PATIENT
  Age: 64 Year
  Sex: Male
  Weight: 87 kg

DRUGS (55)
  1. TIRAGOLUMAB [Suspect]
     Active Substance: TIRAGOLUMAB
     Indication: Oesophageal squamous cell carcinoma
     Dosage: START DATE OF MOST RECENT DOSE 600 MG OF MTIG 7192A PRIOR TO AE/SAE: 26/APR/2021
     Route: 042
     Dates: start: 20210426
  2. ATEZOLIZUMAB [Suspect]
     Active Substance: ATEZOLIZUMAB
     Indication: Oesophageal squamous cell carcinoma
     Dosage: START DATE OF MOST RECENT DOSE 1200 MG OF ATEZOLIZUMAB PRIOR TO AE/SAE: 26/APR/2021
     Route: 042
     Dates: start: 20210426
  3. PACLITAXEL [Suspect]
     Active Substance: PACLITAXEL
     Indication: Oesophageal squamous cell carcinoma
     Dosage: START DATE OF MOST RECENT DOSE OF STUDY DRUG PRIOR TO AE/SAE: 26/APR/2021.?DOSE LAST STUDY DRUG ADMI
     Route: 042
     Dates: start: 20210426
  4. CISPLATIN [Suspect]
     Active Substance: CISPLATIN
     Indication: Oesophageal squamous cell carcinoma
     Dosage: DOSE LAST STUDY DRUG ADMIN PRIOR AE/SAE: 122 MG.?START DATE OF MOST RECENT DOSE OF STUDY DRUG PRIOR
     Route: 042
     Dates: start: 20210426
  5. AMLODIPINE BESYLATE [Concomitant]
     Active Substance: AMLODIPINE BESYLATE
     Indication: Hypertension
  6. INDAPAMIDE [Concomitant]
     Active Substance: INDAPAMIDE
     Indication: Hypertension
  7. OMEPRAZOLE [Concomitant]
     Active Substance: OMEPRAZOLE
  8. RIVAROXABAN [Concomitant]
     Active Substance: RIVAROXABAN
     Indication: Thrombosis
     Dates: start: 20210417
  9. TROXERUTIN [Concomitant]
     Active Substance: TROXERUTIN
     Indication: Thrombosis
     Dates: start: 20210417, end: 20210430
  10. NADROPARIN CALCIUM [Concomitant]
     Active Substance: NADROPARIN CALCIUM
     Indication: Thrombosis
     Dates: start: 20210417, end: 20210418
  11. NADROPARIN CALCIUM [Concomitant]
     Active Substance: NADROPARIN CALCIUM
     Dates: start: 20210421, end: 20210430
  12. SODIUM ESCINATE [Concomitant]
     Active Substance: SODIUM ESCINATE
     Indication: Thrombosis
     Dates: start: 20210417, end: 20210429
  13. DEXAMETHASONE ACETATE [Concomitant]
     Active Substance: DEXAMETHASONE ACETATE
     Dosage: GIVEN FOR PROPHYLAXIS: YES
     Route: 048
     Dates: start: 20210425, end: 20210426
  14. DEXAMETHASONE ACETATE [Concomitant]
     Active Substance: DEXAMETHASONE ACETATE
     Route: 048
     Dates: start: 20210517, end: 20210518
  15. POTASSIUM CHLORIDE [Concomitant]
     Active Substance: POTASSIUM CHLORIDE
     Dates: start: 20210426, end: 20210428
  16. POTASSIUM CHLORIDE [Concomitant]
     Active Substance: POTASSIUM CHLORIDE
     Dates: start: 20210518, end: 20210521
  17. POTASSIUM CHLORIDE [Concomitant]
     Active Substance: POTASSIUM CHLORIDE
     Dates: start: 20210501, end: 20210501
  18. CIMETIDINE [Concomitant]
     Active Substance: CIMETIDINE
     Dosage: GIVEN FOR PROPHYLAXIS: YES
     Dates: start: 20210426, end: 20210501
  19. CIMETIDINE [Concomitant]
     Active Substance: CIMETIDINE
     Dates: start: 20210518, end: 20210518
  20. CIMETIDINE [Concomitant]
     Active Substance: CIMETIDINE
     Dates: start: 20210519, end: 20210521
  21. CIMETIDINE [Concomitant]
     Active Substance: CIMETIDINE
     Dates: start: 20210525, end: 20210525
  22. PALONOSETRON HYDROCHLORIDE [Concomitant]
     Active Substance: PALONOSETRON HYDROCHLORIDE
     Indication: Vomiting
     Dosage: GIVEN FOR PROPHYLAXIS: YES
     Dates: start: 20210426, end: 20210429
  23. PALONOSETRON HYDROCHLORIDE [Concomitant]
     Active Substance: PALONOSETRON HYDROCHLORIDE
     Indication: Nausea
     Dates: start: 20210430, end: 20210430
  24. PALONOSETRON HYDROCHLORIDE [Concomitant]
     Active Substance: PALONOSETRON HYDROCHLORIDE
     Dates: start: 20210506, end: 20210506
  25. DIPHENHYDRAMINE HYDROCHLORIDE [Concomitant]
     Active Substance: DIPHENHYDRAMINE HYDROCHLORIDE
     Indication: Vomiting
     Dosage: GIVEN FOR PROPHYLAXIS: YES
     Dates: start: 20210426, end: 20210429
  26. DIPHENHYDRAMINE HYDROCHLORIDE [Concomitant]
     Active Substance: DIPHENHYDRAMINE HYDROCHLORIDE
     Indication: Nausea
     Dates: start: 20210430, end: 20210501
  27. DIPHENHYDRAMINE HYDROCHLORIDE [Concomitant]
     Active Substance: DIPHENHYDRAMINE HYDROCHLORIDE
     Dates: start: 20210525, end: 20210525
  28. DIPHENHYDRAMINE HYDROCHLORIDE [Concomitant]
     Active Substance: DIPHENHYDRAMINE HYDROCHLORIDE
     Dates: start: 20210518, end: 20210518
  29. METOCLOPRAMIDE DIHYDROCHLORIDE [Concomitant]
     Indication: Prophylaxis
     Dosage: GIVEN FOR PROPHYLAXIS: YES
     Dates: start: 20210426, end: 20210429
  30. METOCLOPRAMIDE DIHYDROCHLORIDE [Concomitant]
     Indication: Nausea
     Dates: start: 20210430, end: 20210501
  31. METOCLOPRAMIDE DIHYDROCHLORIDE [Concomitant]
     Indication: Vomiting
     Dates: start: 20210518, end: 20210518
  32. METOCLOPRAMIDE DIHYDROCHLORIDE [Concomitant]
     Dates: start: 20210525, end: 20210525
  33. FUROSEMIDE [Concomitant]
     Active Substance: FUROSEMIDE
     Indication: Polyuria
     Dosage: GIVEN FOR PROPHYLAXIS: YES
     Dates: start: 20210426, end: 20210427
  34. FUROSEMIDE [Concomitant]
     Active Substance: FUROSEMIDE
     Dates: start: 20210426, end: 20210426
  35. VITAMIN C [Concomitant]
     Active Substance: ASCORBIC ACID
     Dates: start: 20210426, end: 20210430
  36. VITAMIN C [Concomitant]
     Active Substance: ASCORBIC ACID
     Dates: start: 20210525, end: 20210525
  37. VITAMIN C [Concomitant]
     Active Substance: ASCORBIC ACID
     Dates: start: 20210518, end: 20210521
  38. VITAMIN B6 [Concomitant]
     Active Substance: PYRIDOXINE HYDROCHLORIDE
     Dates: start: 20210426, end: 20210501
  39. VITAMIN B6 [Concomitant]
     Active Substance: PYRIDOXINE HYDROCHLORIDE
     Dates: start: 20210525, end: 20210525
  40. VITAMIN B6 [Concomitant]
     Active Substance: PYRIDOXINE HYDROCHLORIDE
     Dates: start: 20210518, end: 20210521
  41. BUCINNAZINE HYDROCHLORIDE [Concomitant]
     Indication: Analgesic therapy
     Dates: start: 20210429, end: 20210429
  42. MORPHINE HYDROCHLORIDE [Concomitant]
     Active Substance: MORPHINE HYDROCHLORIDE
     Indication: Analgesic therapy
     Route: 058
     Dates: start: 20210429, end: 20210501
  43. ESOMEPRAZOLE SODIUM [Concomitant]
     Active Substance: ESOMEPRAZOLE SODIUM
     Dosage: GIVEN FOR PROPHYLAXIS: YES
     Route: 042
     Dates: start: 20210501, end: 20210506
  44. SODIUM CHLORIDE [Concomitant]
     Active Substance: SODIUM CHLORIDE
     Indication: Fluid replacement
     Dates: start: 20210503, end: 20210503
  45. SODIUM CHLORIDE [Concomitant]
     Active Substance: SODIUM CHLORIDE
     Dates: start: 20210426, end: 20210428
  46. SODIUM CHLORIDE [Concomitant]
     Active Substance: SODIUM CHLORIDE
     Dates: start: 20210518, end: 20210520
  47. FOSAPREPITANT DIMEGLUMINE [Concomitant]
     Active Substance: FOSAPREPITANT DIMEGLUMINE
     Dates: start: 20210426, end: 20210426
  48. TROPISETRON HYDROCHLORIDE [Concomitant]
     Active Substance: TROPISETRON HYDROCHLORIDE
     Indication: Nausea
     Dates: start: 20210518, end: 20210518
  49. TROPISETRON HYDROCHLORIDE [Concomitant]
     Active Substance: TROPISETRON HYDROCHLORIDE
     Dates: start: 20210519, end: 20210521
  50. TROPISETRON HYDROCHLORIDE [Concomitant]
     Active Substance: TROPISETRON HYDROCHLORIDE
     Dates: start: 20210501, end: 20210505
  51. TROPISETRON HYDROCHLORIDE [Concomitant]
     Active Substance: TROPISETRON HYDROCHLORIDE
     Dates: start: 20210525, end: 20210525
  52. DEXTROSE [Concomitant]
     Active Substance: DEXTROSE
     Indication: Fluid replacement
     Dates: start: 20210426, end: 20210429
  53. DEXTROSE [Concomitant]
     Active Substance: DEXTROSE
     Dates: start: 20210518, end: 20210521
  54. FOSAPREPITANT [Concomitant]
     Active Substance: FOSAPREPITANT
     Dates: start: 20210524, end: 20210524
  55. ISOSORBIDE DINITRATE [Concomitant]
     Active Substance: ISOSORBIDE DINITRATE

REACTIONS (2)
  - Liver injury [Recovered/Resolved]
  - White blood cell count decreased [Recovered/Resolved]

NARRATIVE: CASE EVENT DATE: 20210428
